FAERS Safety Report 15952369 (Version 1)
Quarter: 2019Q1

REPORT INFORMATION
  Report Type: Spontaneous
  Country: BR (occurrence: BR)
  Receive Date: 20190211
  Receipt Date: 20190211
  Transmission Date: 20190417
  Serious: Yes (Hospitalization, Other)
  Sender: FDA-Public Use
  Company Number: BR-EPIC PHARMA LLC-2019EPC00028

PATIENT
  Age: 8 Year
  Sex: Male

DRUGS (1)
  1. PHENYTOIN. [Suspect]
     Active Substance: PHENYTOIN
     Route: 065

REACTIONS (6)
  - Tachycardia [Recovered/Resolved]
  - Ear haemorrhage [Recovered/Resolved]
  - Poisoning deliberate [Recovered/Resolved]
  - Weight decreased [Recovered/Resolved]
  - Epistaxis [Recovered/Resolved]
  - Toxicity to various agents [Recovered/Resolved]
